FAERS Safety Report 4747936-X (Version None)
Quarter: 2005Q3

REPORT INFORMATION
  Report Type: 
  Country: None (occurrence: None)
  Receive Date: 20050817
  Receipt Date: 20050808
  Transmission Date: 20060218
  Serious: Yes (Other)
  Sender: FDA-Public Use
  Company Number: 2005-DE-03094GD

PATIENT

DRUGS (1)
  1. MORPHINE [Suspect]
     Indication: PROCEDURAL PAIN
     Dosage: SCHEDULED PCA: A DEMAND DOSE OF 50 MCG/KG, FOLLOWED BY REPETITIVE BOLUSES OF 25 MCG/KG (LOCKOUT TIME

REACTIONS (1)
  - ANAPHYLACTIC REACTION [None]
